FAERS Safety Report 5312711-4 (Version None)
Quarter: 2007Q2

REPORT INFORMATION
  Report Type: 
  Country: None (occurrence: None)
  Receive Date: 20070430
  Receipt Date: 20070420
  Transmission Date: 20071010
  Serious: Yes (Life-Threatening, Hospitalization, Disabling)
  Sender: FDA-Public Use
  Company Number: US-KINGPHARMUSA00001-K200700503

PATIENT

DRUGS (25)
  1. ALTACE [Suspect]
     Indication: HYPERTENSION
     Dosage: 10 MG, QD
     Route: 048
     Dates: start: 20061215, end: 20061222
  2. AMITRIPTYLINE HYDROCHLORIDE [Concomitant]
     Dosage: 25 MG, UNK
     Route: 048
  3. ASPIRIN [Concomitant]
     Dosage: 75 MG, UNK
     Route: 048
  4. ATORVASTATIN CALCIUM [Concomitant]
     Dosage: 20 MG, UNK
     Route: 048
  5. BENDROFLUAZIDE [Concomitant]
     Indication: HYPERTENSION
     Route: 048
     Dates: start: 20061215, end: 20061222
  6. BENDROFLUMETHIAZIDE [Concomitant]
     Dosage: 2.5 MG, UNK
     Route: 048
  7. BENZYDAMINE HYDROCHLORIDE [Concomitant]
     Dosage: 3 %, UNK
     Route: 061
  8. DOXAZOSIN MESYLATE [Concomitant]
     Dosage: 4 MG, UNK
     Route: 048
  9. FENOFIBRATE [Concomitant]
     Dosage: 160 MG, UNK
     Route: 048
  10. FLUTICASONE PROPIONATE [Concomitant]
     Dosage: 125 UG, UNK
  11. FUROSEMIDE [Concomitant]
     Dosage: 40 MG, UNK
     Route: 048
  12. GAVISCON [Concomitant]
     Dosage: 20 ML, UNK
     Route: 048
  13. GLYCERYL TRINITRATE [Concomitant]
     Dosage: 400 UG, UNK
  14. ISOKET RETARD [Concomitant]
     Dosage: 120 MG, UNK
     Route: 048
  15. LANSOPRAZOLE [Concomitant]
     Dosage: 15 MG, UNK
     Route: 048
  16. MELOXICAM [Concomitant]
     Dosage: 15 MG, UNK
     Route: 048
  17. METFORMIN HCL [Concomitant]
     Dosage: 1500 MG, UNK
     Route: 048
  18. PARACETAMOL [Concomitant]
     Dosage: UNK, QID
     Route: 048
  19. PREDNISOLONE [Concomitant]
     Dosage: 30 MG, UNK
     Route: 048
     Dates: start: 20061222
  20. PROCHLORPERAZINE MALEATE [Concomitant]
     Dosage: 10 MG, UNK
     Route: 048
  21. SALBUTAMOL [Concomitant]
     Dosage: 600 UG, UNK
  22. SALMETEROL [Concomitant]
     Dosage: 25 UG, UNK
  23. TEMAZEPAM [Concomitant]
     Dosage: 10 MG, UNK
     Route: 048
  24. TRAMADOL HCL [Concomitant]
     Dosage: 200 MG, UNK
     Route: 048
  25. TRAMADOL HCL [Concomitant]
     Dosage: 100 MG, UNK
     Route: 048

REACTIONS (5)
  - DERMATITIS EXFOLIATIVE [None]
  - DERMATITIS PSORIASIFORM [None]
  - OEDEMA [None]
  - PERIPHERAL ISCHAEMIA [None]
  - SKIN ULCER [None]
